FAERS Safety Report 25026778 (Version 5)
Quarter: 2025Q3

REPORT INFORMATION
  Report Type: Spontaneous
  Country: US (occurrence: US)
  Receive Date: 20250301
  Receipt Date: 20250918
  Transmission Date: 20251020
  Serious: No
  Sender: SANOFI AVENTIS
  Company Number: US-SA-2025SA056252

PATIENT
  Age: 27 Year
  Sex: Male

DRUGS (5)
  1. DUPIXENT [Suspect]
     Active Substance: DUPILUMAB
     Indication: Dermatitis atopic
     Route: 058
     Dates: start: 20250219, end: 20250219
  2. DUPIXENT [Suspect]
     Active Substance: DUPILUMAB
     Dosage: 300 MG, QOW
     Route: 058
     Dates: start: 20250305, end: 2025
  3. DUPIXENT [Suspect]
     Active Substance: DUPILUMAB
     Dosage: 300 MG, QOW
     Route: 058
     Dates: start: 20250908
  4. FLUOCINONIDE [Concomitant]
     Active Substance: FLUOCINONIDE
  5. HYDROCORTISONE [Concomitant]
     Active Substance: HYDROCORTISONE

REACTIONS (10)
  - Injection site swelling [Unknown]
  - Injection site pain [Recovered/Resolved]
  - Product preparation error [Unknown]
  - Dermatitis atopic [Unknown]
  - Erythema [Unknown]
  - Ocular hyperaemia [Unknown]
  - Rebound effect [Unknown]
  - Product dose omission issue [Unknown]
  - Product dose omission in error [Unknown]
  - Incorrect dose administered [Unknown]

NARRATIVE: CASE EVENT DATE: 20250101
